FAERS Safety Report 15109285 (Version 2)
Quarter: 2018Q3

REPORT INFORMATION
  Report Type: Spontaneous
  Country: DE (occurrence: DE)
  Receive Date: 20180705
  Receipt Date: 20180712
  Transmission Date: 20181010
  Serious: Yes (Hospitalization, Other)
  Sender: FDA-Public Use
  Company Number: DE-IPSEN BIOPHARMACEUTICALS, INC.-2018-09413

PATIENT
  Age: 68 Year
  Sex: Male

DRUGS (11)
  1. SOMATULINE AUTOGEL 60MG [Suspect]
     Active Substance: LANREOTIDE ACETATE
     Indication: CARCINOID TUMOUR
  2. NEBIVOLOL. [Concomitant]
     Active Substance: NEBIVOLOL
  3. SOMATULINE AUTOGEL 60MG [Suspect]
     Active Substance: LANREOTIDE ACETATE
     Indication: NEUROENDOCRINE TUMOUR
  4. MARCUMAR [Suspect]
     Active Substance: PHENPROCOUMON
     Indication: ANTICOAGULANT THERAPY
     Dosage: SIX TIMES PER WEEKS HALF TABLET, ONCE PER WEEK QUARTER TABLET (1.5 MG A DAY)
     Dates: end: 2018
  5. SPIOLTO RESPIMAT [Concomitant]
     Active Substance: OLODATEROL HYDROCHLORIDE\TIOTROPIUM BROMIDE MONOHYDRATE
  6. BERODUAL [Concomitant]
     Active Substance: FENOTEROL HYDROBROMIDE\IPRATROPIUM BROMIDE
  7. ALLOPURINOL. [Concomitant]
     Active Substance: ALLOPURINOL
  8. MAGNESIUM/POTASSIUM [Concomitant]
     Dosage: TWO DOSAGE FORMS DAILY (MORNING AND NOON)
  9. SOMATULINE AUTOGEL 60MG [Suspect]
     Active Substance: LANREOTIDE ACETATE
     Indication: DIARRHOEA
     Dosage: 60 MG
     Route: 058
     Dates: start: 20180524
  10. ACETYLCYSTEINE. [Concomitant]
     Active Substance: ACETYLCYSTEINE
  11. IVABRADINE [Concomitant]
     Active Substance: IVABRADINE
     Dates: end: 2018

REACTIONS (22)
  - Tricuspid valve incompetence [Unknown]
  - Aortic aneurysm [Unknown]
  - Prostatomegaly [Unknown]
  - Bundle branch block right [Unknown]
  - Weight decreased [Not Recovered/Not Resolved]
  - International normalised ratio increased [Recovering/Resolving]
  - Mitral valve disease mixed [Unknown]
  - Spinal osteoarthritis [Unknown]
  - Infective exacerbation of chronic obstructive airways disease [Recovering/Resolving]
  - Nephrolithiasis [Unknown]
  - Ureteral stent insertion [Unknown]
  - Drug interaction [Recovering/Resolving]
  - Atrial fibrillation [Not Recovered/Not Resolved]
  - Acute kidney injury [Unknown]
  - Sleep apnoea syndrome [Unknown]
  - Aortic arteriosclerosis [Unknown]
  - Type 1 diabetes mellitus [Unknown]
  - Klebsiella infection [Recovering/Resolving]
  - Hyperuricaemia [Unknown]
  - Cardiac failure congestive [Unknown]
  - Arteriosclerosis coronary artery [Unknown]
  - Pneumonia [Recovering/Resolving]

NARRATIVE: CASE EVENT DATE: 2018
